FAERS Safety Report 8854058 (Version 1)
Quarter: 2012Q4

REPORT INFORMATION
  Report Type: 
  Country: US (occurrence: US)
  Receive Date: 20121022
  Receipt Date: 20121022
  Transmission Date: 20130627
  Serious: Yes (Other)
  Sender: FDA-Public Use
  Company Number: PHEH2012US017683

PATIENT
  Sex: Female

DRUGS (37)
  1. ZOMETA [Suspect]
     Dosage: 4 mg, QMO
     Route: 042
     Dates: start: 201001, end: 201009
  2. ZOMETA [Suspect]
     Dosage: 4 mg, QMO
     Route: 042
     Dates: start: 20110422, end: 20110715
  3. TYKERB [Concomitant]
  4. JUICE PLUS [Concomitant]
  5. SELENIUM [Concomitant]
  6. VITAMIN E [Concomitant]
  7. B100 [Concomitant]
  8. VITEYES [Concomitant]
  9. LUTEIN [Concomitant]
  10. MULTI-VITAMINS [Concomitant]
  11. VIACTIV [Concomitant]
  12. ACETYLCARNITINE [Concomitant]
  13. NEUROPATHY SUPPORT FORMULA [Concomitant]
  14. LIQUID AMINOS [Concomitant]
  15. VITAMIN B12 [Concomitant]
  16. MUSHROOM SUPPLEMENT [Concomitant]
  17. CORDYCEPS [Concomitant]
  18. CHROMIUM PICOLINATE [Concomitant]
  19. OREGANO [Concomitant]
  20. OLIVE LEAVES EXTRACT [Concomitant]
  21. PROBIOTICS [Concomitant]
  22. MULTI ENZIMES [Concomitant]
  23. HERBAVISION [Concomitant]
  24. OMEGA 3 FISH OIL [Concomitant]
  25. CALCIUM [Concomitant]
  26. MAGNESIUM [Concomitant]
  27. VITAMIN C [Concomitant]
  28. VITAMIN D3 [Concomitant]
  29. COQ10 [Concomitant]
  30. CURCUMIN [Concomitant]
  31. WHITE PROTEIN [Concomitant]
  32. CHLORELLA [Concomitant]
  33. VANQUISH [Concomitant]
  34. TEDRAL [Concomitant]
  35. PSEUDO ETHEDRA [Concomitant]
  36. BENADRYL [Concomitant]
  37. THROAT PREPARATIONS [Concomitant]

REACTIONS (6)
  - Eye disorder [Unknown]
  - Myalgia [Unknown]
  - Pain of skin [Unknown]
  - Pain in extremity [Unknown]
  - Headache [Unknown]
  - Pain [Unknown]
